FAERS Safety Report 15208538 (Version 2)
Quarter: 2018Q3

REPORT INFORMATION
  Report Type: Spontaneous
  Country: FR (occurrence: FR)
  Receive Date: 20180727
  Receipt Date: 20180831
  Transmission Date: 20181010
  Serious: Yes (Other)
  Sender: FDA-Public Use
  Company Number: FR-AMGEN-FRASP2018100691

PATIENT
  Age: 7 Month
  Sex: Male
  Weight: 6.17 kg

DRUGS (40)
  1. CYTARABINE. [Concomitant]
     Active Substance: CYTARABINE
     Dosage: 15 MG, (33 AND DAY 39)
     Route: 037
     Dates: start: 2018
  2. CYTARABINE. [Concomitant]
     Active Substance: CYTARABINE
     Dosage: 15 MG, UNK
     Route: 037
     Dates: start: 20180421
  3. METHOTREXATE. [Concomitant]
     Active Substance: METHOTREXATE
     Dosage: 6 MG, UNK
     Dates: start: 20180625
  4. DEPO?MEDROL [Concomitant]
     Active Substance: METHYLPREDNISOLONE ACETATE
     Dosage: 6 MG, QWK
     Route: 037
     Dates: start: 20180731
  5. PRIVIGEN [Concomitant]
     Active Substance: HUMAN IMMUNOGLOBULIN G
     Dosage: 0.4 G/KG
     Route: 042
     Dates: start: 20180626
  6. PRIVIGEN [Concomitant]
     Active Substance: HUMAN IMMUNOGLOBULIN G
     Dosage: 0.4 G/KG
     Route: 042
     Dates: start: 20180724
  7. MYLOTARG [Concomitant]
     Active Substance: GEMTUZUMAB OZOGAMICIN
     Dosage: 3 MG/M2, UNK
     Dates: start: 20180622
  8. CYTARABINE. [Concomitant]
     Active Substance: CYTARABINE
     Dosage: 15 MG, (50MG/M2/DAY FROM DAY 8 TO DAY 21)
     Dates: start: 2018
  9. CYTARABINE. [Concomitant]
     Active Substance: CYTARABINE
     Dosage: 75 MG/M2, (3 TO DAY 6, 14)
  10. CYTARABINE. [Concomitant]
     Active Substance: CYTARABINE
     Dosage: 15 MG, UNK
     Route: 037
     Dates: start: 20180611
  11. ETOPOSIDE. [Concomitant]
     Active Substance: ETOPOSIDE
     Dosage: 100 MG/M2, QD
  12. BLINCYTO [Suspect]
     Active Substance: BLINATUMOMAB
     Indication: ACUTE LYMPHOCYTIC LEUKAEMIA
     Dosage: 1.75 MUG, QD (1 TO DAY 7)
     Route: 042
     Dates: start: 20180605, end: 20180611
  13. BLINCYTO [Suspect]
     Active Substance: BLINATUMOMAB
     Dosage: 1.75 MUG, QD
     Route: 042
     Dates: start: 20180703
  14. DEPO?MEDROL [Concomitant]
     Active Substance: METHYLPREDNISOLONE ACETATE
     Dosage: 6 MG, UNK
     Dates: start: 20180421
  15. DEPO?MEDROL [Concomitant]
     Active Substance: METHYLPREDNISOLONE ACETATE
     Dosage: 6 MG, UNK
     Dates: start: 20180428
  16. POLARAMINE [Concomitant]
     Active Substance: DEXCHLORPHENIRAMINE MALEATE
     Dosage: UNK
     Dates: start: 20180718
  17. PARACETAMOL [Concomitant]
     Active Substance: ACETAMINOPHEN
     Dosage: UNK
  18. AMIKLIN [Concomitant]
     Active Substance: AMIKACIN SULFATE
     Dosage: UNK
     Dates: start: 20180629
  19. BACTRIM [Concomitant]
     Active Substance: SULFAMETHOXAZOLE\TRIMETHOPRIM
     Indication: PROPHYLAXIS
  20. FUNGIZONE [Concomitant]
     Active Substance: AMPHOTERICIN B
     Indication: PROPHYLAXIS
     Dosage: UNK
     Dates: start: 2018
  21. MYLOTARG [Concomitant]
     Active Substance: GEMTUZUMAB OZOGAMICIN
     Dosage: 3 MG/M2, UNK
     Dates: start: 20180615
  22. MYLOTARG [Concomitant]
     Active Substance: GEMTUZUMAB OZOGAMICIN
     Dosage: 3 MG/M2, UNK
     Dates: start: 20180619
  23. CYTARABINE. [Concomitant]
     Active Substance: CYTARABINE
     Dosage: 2250 MG/M2, UNK
     Dates: start: 20180428, end: 20180430
  24. CYTARABINE. [Concomitant]
     Active Substance: CYTARABINE
     Dosage: 75 MG/M2, (ON DAYS 1 AND 2)
     Dates: start: 20180530, end: 20180531
  25. DEPO?MEDROL [Concomitant]
     Active Substance: METHYLPREDNISOLONE ACETATE
     Dosage: 6 MG, (DAYS 10 AND 16)
     Route: 037
  26. CYTARABINE. [Concomitant]
     Active Substance: CYTARABINE
     Dosage: 15 MG, UNK
     Route: 037
     Dates: start: 20180723
  27. METHOTREXATE. [Concomitant]
     Active Substance: METHOTREXATE
     Dosage: 6 MG,
     Route: 037
     Dates: start: 2018
  28. METHYLPREDNISOLONE. [Concomitant]
     Active Substance: METHYLPREDNISOLONE
     Dosage: 6 MG, UNK
     Route: 037
     Dates: start: 20180611
  29. TIENAM [Concomitant]
     Active Substance: CILASTATIN SODIUM\IMIPENEM
     Dosage: UNK
     Dates: start: 20180629
  30. AMBISOME [Concomitant]
     Active Substance: AMPHOTERICIN B
     Dosage: 7 MG, UNK
     Dates: start: 2018
  31. BLINCYTO [Suspect]
     Active Substance: BLINATUMOMAB
     Indication: B PRECURSOR TYPE ACUTE LEUKAEMIA
     Dosage: 5 MUG, QD (DAY 8 TO DAY 25)
     Route: 042
     Dates: start: 20180612, end: 20180629
  32. CYTARABINE. [Concomitant]
     Active Substance: CYTARABINE
     Dosage: 15 MG, UNK
     Route: 037
     Dates: start: 20180428
  33. CYTARABINE. [Concomitant]
     Active Substance: CYTARABINE
     Dosage: 15 MG, QWK
     Route: 037
     Dates: start: 20180731
  34. METHOTREXATE. [Concomitant]
     Active Substance: METHOTREXATE
     Dosage: 6 MG, UNK
     Dates: start: 20180611
  35. METHOTREXATE. [Concomitant]
     Active Substance: METHOTREXATE
     Dosage: 6 MG, UNK
     Dates: start: 20180629
  36. METHOTREXATE. [Concomitant]
     Active Substance: METHOTREXATE
     Dosage: 6 MG, QWK
     Route: 037
     Dates: start: 20180731
  37. CYTARABINE. [Concomitant]
     Active Substance: CYTARABINE
     Dosage: 15 MG, UNK
     Route: 037
     Dates: start: 20180629
  38. CYTARABINE. [Concomitant]
     Active Substance: CYTARABINE
     Dosage: 15 MG, UNK
     Route: 037
     Dates: start: 20180625
  39. METHYLPREDNISOLONE. [Concomitant]
     Active Substance: METHYLPREDNISOLONE
     Dosage: 6 MG, UNK
     Route: 037
     Dates: start: 20180625
  40. METHYLPREDNISOLONE. [Concomitant]
     Active Substance: METHYLPREDNISOLONE
     Dosage: 6 MG, UNK
     Route: 037
     Dates: start: 20180629

REACTIONS (2)
  - Febrile convulsion [Recovered/Resolved]
  - Pyrexia [Recovered/Resolved]

NARRATIVE: CASE EVENT DATE: 20180629
